FAERS Safety Report 6528598-8 (Version None)
Quarter: 2010Q1

REPORT INFORMATION
  Report Type: 
  Country: None (occurrence: None)
  Receive Date: 20100105
  Receipt Date: 20100105
  Transmission Date: 20100710
  Serious: Yes (Other)
  Sender: FDA-Public Use
  Company Number: None

PATIENT
  Age: 41 Year
  Sex: Female
  Weight: 65.7716 kg

DRUGS (4)
  1. SERTRALINE HYDROCHLORIDE [Suspect]
     Indication: ANXIETY
     Dosage: 25 MG 1/DAY PO
     Route: 048
     Dates: start: 20090621, end: 20090623
  2. SERTRALINE HYDROCHLORIDE [Suspect]
     Indication: DEPRESSION
     Dosage: 25 MG 1/DAY PO
     Route: 048
     Dates: start: 20090621, end: 20090623
  3. CYMBALTA [Suspect]
     Indication: ANXIETY
     Dosage: 30 MG 1/DAY PO
     Route: 048
     Dates: start: 20090718, end: 20090721
  4. CYMBALTA [Suspect]
     Indication: DEPRESSION
     Dosage: 30 MG 1/DAY PO
     Route: 048
     Dates: start: 20090718, end: 20090721

REACTIONS (7)
  - HEADACHE [None]
  - HYPERACUSIS [None]
  - HYPERAESTHESIA [None]
  - NO THERAPEUTIC RESPONSE [None]
  - PARAESTHESIA [None]
  - SENSORY DISTURBANCE [None]
  - TREMOR [None]
